FAERS Safety Report 5677352-8 (Version None)
Quarter: 2008Q1

REPORT INFORMATION
  Report Type: 
  Country: None (occurrence: None)
  Receive Date: 20080320
  Receipt Date: 20080320
  Transmission Date: 20080703
  Serious: Yes (Other)
  Sender: FDA-Public Use
  Company Number: None

PATIENT
  Sex: Female
  Weight: 76.2043 kg

DRUGS (1)
  1. ACTONEL [Suspect]
     Indication: OSTEOPOROSIS
     Dosage: 1 TABLET 2 CONSEC DAYS/MO PO
     Route: 048
     Dates: start: 20080303, end: 20080304

REACTIONS (18)
  - ARTHRALGIA [None]
  - BACK PAIN [None]
  - BONE PAIN [None]
  - BURNING SENSATION [None]
  - CHEST DISCOMFORT [None]
  - DYSSTASIA [None]
  - ERYTHEMA [None]
  - FEELING HOT [None]
  - GAIT DISTURBANCE [None]
  - LIMB DISCOMFORT [None]
  - MOVEMENT DISORDER [None]
  - MUSCULOSKELETAL CHEST PAIN [None]
  - MYALGIA [None]
  - NO THERAPEUTIC RESPONSE [None]
  - OEDEMA PERIPHERAL [None]
  - PAIN [None]
  - PAIN IN EXTREMITY [None]
  - RESPIRATORY DISORDER [None]
